FAERS Safety Report 4943508-2 (Version None)
Quarter: 2006Q1

REPORT INFORMATION
  Report Type: 
  Country: None (occurrence: None)
  Receive Date: 20060309
  Receipt Date: 20060228
  Transmission Date: 20060701
  Serious: Yes (Disabling)
  Sender: FDA-Public Use
  Company Number: 231175K06USA

PATIENT
  Age: 31 Year
  Sex: Female

DRUGS (3)
  1. REBIF [Suspect]
     Indication: MULTIPLE SCLEROSIS
     Dosage: 44 MCG, 3 IN 1 WEEKS, SUBCUTANEOUS
     Route: 058
     Dates: start: 20060113
  2. METFORMIN (METFORMIN /00082701/) [Concomitant]
  3. TYLENOL (COTYLENOL) [Concomitant]

REACTIONS (4)
  - ARTHRALGIA [None]
  - DYSSTASIA [None]
  - LOSS OF CONTROL OF LEGS [None]
  - PAIN [None]
